FAERS Safety Report 5219755-1 (Version None)
Quarter: 2006Q4

REPORT INFORMATION
  Report Type: 
  Country: None (occurrence: None)
  Receive Date: 20061201
  Receipt Date: 20060703
  Transmission Date: 20070319
  Serious: No
  Sender: FDA-Public Use
  Company Number: 2006PV016889

PATIENT
  Age: 61 Year
  Sex: Female
  Weight: 84.369 kg

DRUGS (6)
  1. BYETTA [Suspect]
     Indication: DIABETES MELLITUS NON-INSULIN-DEPENDENT
     Dosage: 5 MCG; BID; SC
     Route: 058
     Dates: start: 20060623, end: 20060708
  2. METFORMIN HCL [Concomitant]
  3. ACTOS [Concomitant]
  4. PHENERGAN ^AVENTIS PHARMA^ [Concomitant]
  5. GLIPIZIDE [Concomitant]
  6. GLUCOPHAGE [Concomitant]

REACTIONS (8)
  - ASTHENIA [None]
  - BLOOD GLUCOSE DECREASED [None]
  - DEHYDRATION [None]
  - INJECTION SITE HAEMORRHAGE [None]
  - NAUSEA [None]
  - TREMOR [None]
  - VOMITING [None]
  - WEIGHT DECREASED [None]
